FAERS Safety Report 17967039 (Version 1)
Quarter: 2020Q3

REPORT INFORMATION
  Report Type: Spontaneous
  Country: US (occurrence: US)
  Receive Date: 20200701
  Receipt Date: 20200701
  Transmission Date: 20201103
  Serious: No
  Sender: FDA-Public Use
  Company Number: US-KARYOPHARM-2020KPT000648

PATIENT

DRUGS (1)
  1. XPOVIO [Suspect]
     Active Substance: SELINEXOR
     Indication: PLASMA CELL MYELOMA
     Dosage: 80 MG, 2X/WEEK
     Route: 048
     Dates: start: 20200601, end: 20200611

REACTIONS (4)
  - Confusional state [Unknown]
  - Fatigue [Unknown]
  - Disorientation [Unknown]
  - Hallucination [Unknown]

NARRATIVE: CASE EVENT DATE: 202006
